FAERS Safety Report 5392377-8 (Version None)
Quarter: 2007Q3

REPORT INFORMATION
  Report Type: 
  Country: None (occurrence: None)
  Receive Date: 20070720
  Receipt Date: 20070716
  Transmission Date: 20080115
  Serious: Yes (Hospitalization)
  Sender: FDA-Public Use
  Company Number: A0664334A

PATIENT
  Age: 77 Year
  Sex: Female

DRUGS (3)
  1. DIGOXIN [Suspect]
     Indication: ATRIAL FIBRILLATION
     Dosage: 125MCG PER DAY
     Route: 048
     Dates: start: 20020101
  2. LASIX [Concomitant]
  3. ANTACID TAB [Concomitant]

REACTIONS (4)
  - ABDOMINAL PAIN UPPER [None]
  - ATRIAL FIBRILLATION [None]
  - HEART RATE INCREASED [None]
  - RESPIRATORY TRACT INFECTION VIRAL [None]
